FAERS Safety Report 6547318-4 (Version None)
Quarter: 2010Q1

REPORT INFORMATION
  Report Type: 
  Country: None (occurrence: None)
  Receive Date: 20100122
  Receipt Date: 20100111
  Transmission Date: 20100710
  Serious: Yes (Hospitalization, Other)
  Sender: FDA-Public Use
  Company Number: SE-KINGPHARMUSA00001-K201000037

PATIENT
  Age: 35 Year
  Sex: Female

DRUGS (2)
  1. LEVOXYL [Suspect]
     Indication: AUTOIMMUNE THYROIDITIS
     Dosage: 100 MCG, QD
  2. LEVOXYL [Suspect]
     Dosage: 300 MCG, QD

REACTIONS (9)
  - BLOOD PRESSURE INCREASED [None]
  - CARDIOLIPIN ANTIBODY POSITIVE [None]
  - CHOREOATHETOSIS [None]
  - DRUG ABUSE [None]
  - DYSKINESIA [None]
  - HYPERHIDROSIS [None]
  - RESTLESSNESS [None]
  - TACHYCARDIA [None]
  - WEIGHT DECREASED [None]
